FAERS Safety Report 8068952-9 (Version None)
Quarter: 2012Q1

REPORT INFORMATION
  Report Type: 
  Country: None (occurrence: None)
  Receive Date: 20120125
  Receipt Date: 20120117
  Transmission Date: 20120608
  Serious: Yes (Hospitalization, Other)
  Sender: FDA-Public Use
  Company Number: US-BAYER-2011-044946

PATIENT
  Age: 22 Year
  Sex: Female
  Weight: 59 kg

DRUGS (8)
  1. DROSPIRENONE AND ETHINYL ESTRADIOL [Suspect]
     Indication: MENSTRUATION IRREGULAR
  2. YASMIN [Suspect]
     Indication: ACNE
     Dosage: UNK
     Route: 048
     Dates: start: 20070101, end: 20080501
  3. YASMIN [Suspect]
     Indication: CONTRACEPTION
  4. MINOCYCLINE HCL [Concomitant]
     Indication: ACNE
     Route: 048
  5. YASMIN [Suspect]
     Indication: MENSTRUATION IRREGULAR
  6. DROSPIRENONE AND ETHINYL ESTRADIOL [Suspect]
     Indication: CONTRACEPTION
  7. DROSPIRENONE AND ETHINYL ESTRADIOL [Suspect]
     Indication: ACNE
     Dosage: UNK
     Route: 048
     Dates: start: 20080601, end: 20090401
  8. ADDERALL XR 10 [Concomitant]
     Indication: ATTENTION DEFICIT/HYPERACTIVITY DISORDER
     Dosage: 10 MG, QD
     Route: 048

REACTIONS (12)
  - ANXIETY [None]
  - VENOUS INJURY [None]
  - MENTAL DISORDER [None]
  - PAIN [None]
  - VENOUS THROMBOSIS LIMB [None]
  - ANHEDONIA [None]
  - PSYCHOLOGICAL TRAUMA [None]
  - DEEP VEIN THROMBOSIS [None]
  - PARANOIA [None]
  - INJURY [None]
  - FEAR [None]
  - PULMONARY EMBOLISM [None]
